FAERS Safety Report 9513962 (Version 2)
Quarter: 2013Q4

REPORT INFORMATION
  Report Type: Spontaneous
  Country: JP (occurrence: JP)
  Receive Date: 20130910
  Receipt Date: 20131021
  Transmission Date: 20140711
  Serious: Yes (Hospitalization, Disabling)
  Sender: FDA-Public Use
  Company Number: JP-TAKEDA-2013TJP000120

PATIENT
  Age: 9 Decade
  Sex: Female

DRUGS (2)
  1. TAKEPRON OD TABLETS 30 [Suspect]
     Indication: PAIN
     Dosage: 30 UNK, UNK
     Route: 048
     Dates: start: 20130724, end: 20130801
  2. CELECOXIB [Suspect]
     Indication: PROPHYLAXIS
     Dosage: 200 MG, BID
     Route: 048
     Dates: start: 20130724, end: 20130801

REACTIONS (1)
  - Drug eruption [Recovered/Resolved]
